FAERS Safety Report 16013963 (Version 1)
Quarter: 2019Q1

REPORT INFORMATION
  Report Type: Spontaneous
  Country: FI (occurrence: FI)
  Receive Date: 20190227
  Receipt Date: 20190227
  Transmission Date: 20190418
  Serious: Yes (Other)
  Sender: FDA-Public Use
  Company Number: FI-SA-2019SA051889

PATIENT
  Sex: Female

DRUGS (1)
  1. AUBAGIO [Suspect]
     Active Substance: TERIFLUNOMIDE
     Dosage: UNK, UNK
     Route: 048
     Dates: start: 201405

REACTIONS (2)
  - Diabetic nephropathy [Not Recovered/Not Resolved]
  - Eosinophilia [Unknown]
